FAERS Safety Report 24826791 (Version 1)
Quarter: 2025Q1

REPORT INFORMATION
  Report Type: Spontaneous
  Country: US (occurrence: US)
  Receive Date: 20250109
  Receipt Date: 20250109
  Transmission Date: 20250408
  Serious: Yes (Other)
  Sender: SANOFI AVENTIS
  Company Number: US-SANOFI-02363909

PATIENT
  Sex: Male

DRUGS (6)
  1. DUPIXENT [Suspect]
     Active Substance: DUPILUMAB
     Indication: Hypereosinophilic syndrome
  2. DUPIXENT [Suspect]
     Active Substance: DUPILUMAB
     Indication: Asthma
  3. DUPIXENT [Suspect]
     Active Substance: DUPILUMAB
     Indication: Nasal polyps
  4. PREDNISONE [Concomitant]
     Active Substance: PREDNISONE
  5. NUCALA [Concomitant]
     Active Substance: MEPOLIZUMAB
     Dosage: 100 MILLIGRAMS EVERY FOUR WEEK
  6. NUCALA [Concomitant]
     Active Substance: MEPOLIZUMAB
     Dosage: 300MG,Q4W

REACTIONS (6)
  - Myocarditis [Unknown]
  - Cardiac failure congestive [Unknown]
  - Eosinophil count increased [Unknown]
  - Nasal congestion [Unknown]
  - Rash [Unknown]
  - Product use in unapproved indication [Unknown]
